FAERS Safety Report 12372900 (Version 1)
Quarter: 2016Q2

REPORT INFORMATION
  Report Type: Spontaneous
  Country: US (occurrence: US)
  Receive Date: 20160516
  Receipt Date: 20160516
  Transmission Date: 20160815
  Serious: No
  Sender: FDA-Public Use
  Company Number: ADR-2015-01318

PATIENT
  Age: 65 Year
  Sex: Female

DRUGS (2)
  1. COMPOUNDED MORPHINE [Suspect]
     Active Substance: MORPHINE
     Dosage: 9.219MG/DAY
     Route: 037
  2. COMPOUNDED BACLOFEN [Suspect]
     Active Substance: BACLOFEN
     Dosage: 21.119MCG/DAY
     Route: 037

REACTIONS (2)
  - Nausea [Recovered/Resolved]
  - Pain [Recovered/Resolved]
